FAERS Safety Report 16279267 (Version 2)
Quarter: 2019Q2

REPORT INFORMATION
  Report Type: Report from Study
  Country: None (occurrence: US)
  Receive Date: 20190506
  Receipt Date: 20190509
  Transmission Date: 20190711
  Serious: Yes (Hospitalization, Other)
  Sender: FDA-Public Use
  Company Number: US-ABBVIE-19S-163-2770677-00

PATIENT
  Age: 73 Year
  Sex: Female

DRUGS (1)
  1. CREON [Suspect]
     Active Substance: PANCRELIPASE AMYLASE\PANCRELIPASE LIPASE\PANCRELIPASE PROTEASE
     Indication: PRODUCT USED FOR UNKNOWN INDICATION
     Route: 048

REACTIONS (24)
  - Shoulder arthroplasty [Unknown]
  - Tonsillectomy [Unknown]
  - Hyponatraemia [Unknown]
  - Dizziness [Unknown]
  - Eye operation [Unknown]
  - Arthralgia [Unknown]
  - Hypothyroidism [Unknown]
  - Cholecystectomy [Unknown]
  - Atrial fibrillation [Unknown]
  - Bartholin^s cyst [Unknown]
  - Fall [Unknown]
  - Pain [Unknown]
  - Pancreatic carcinoma [Unknown]
  - Shoulder arthroplasty [Unknown]
  - Splenectomy [Unknown]
  - Appendicectomy [Unknown]
  - Blood pressure increased [Unknown]
  - Head injury [Unknown]
  - Pancreatic disorder [Unknown]
  - Actinic keratosis [Unknown]
  - Seizure [Unknown]
  - Spinal operation [Unknown]
  - Herpes zoster [Unknown]
  - Diarrhoea [Unknown]

NARRATIVE: CASE EVENT DATE: 1990
